FAERS Safety Report 6556991-6 (Version None)
Quarter: 2010Q1

REPORT INFORMATION
  Report Type: 
  Country: None (occurrence: None)
  Receive Date: 20100128
  Receipt Date: 20100125
  Transmission Date: 20100710
  Serious: Yes (Hospitalization)
  Sender: FDA-Public Use
  Company Number: US-GILEAD-2010-0026419

PATIENT
  Sex: Female
  Weight: 89.892 kg

DRUGS (26)
  1. LETAIRIS [Suspect]
     Indication: PULMONARY ARTERIAL HYPERTENSION
     Route: 048
     Dates: start: 20080229
  2. VENTAVIS [Concomitant]
  3. REVATIO [Concomitant]
  4. COUMADIN [Concomitant]
  5. AMBIEN [Concomitant]
  6. OXYGEN [Concomitant]
  7. BUSPAR [Concomitant]
  8. BYETTA [Concomitant]
  9. NABUMETONE [Concomitant]
  10. METOCLOPRAMIDE [Concomitant]
  11. LORAZEPAM [Concomitant]
  12. GABAPENTIN [Concomitant]
  13. SEROQUEL [Concomitant]
  14. LACTOSE [Concomitant]
  15. CLARITIN [Concomitant]
  16. MAXEPA [Concomitant]
  17. PREVACID [Concomitant]
  18. IMITREX [Concomitant]
  19. SKELAXIN [Concomitant]
  20. FLONASE [Concomitant]
  21. CALCIUM 500 W/ VITAMIN D [Concomitant]
  22. ALBUTEROL [Concomitant]
  23. SPIRIVA [Concomitant]
  24. VITAMIN C [Concomitant]
  25. MULTI-VITAMIN [Concomitant]
  26. ASPIRIN [Concomitant]

REACTIONS (1)
  - CARDIAC FAILURE CONGESTIVE [None]
